FAERS Safety Report 12086580 (Version 1)
Quarter: 2016Q1

REPORT INFORMATION
  Report Type: Spontaneous
  Country: US (occurrence: US)
  Receive Date: 20160217
  Receipt Date: 20160217
  Transmission Date: 20160526
  Serious: No
  Sender: FDA-Public Use
  Company Number: US-ALLERGAN-1504282US

PATIENT
  Age: 55 Year
  Sex: Female
  Weight: .91 kg

DRUGS (3)
  1. CALCIFEROL VIT D [Concomitant]
     Indication: VITAMIN D DECREASED
     Dosage: DAILY DOSE 4000 IU DAILY, UNK
     Dates: start: 2010
  2. RESTASIS [Suspect]
     Active Substance: CYCLOSPORINE
     Indication: DRY EYE
     Dosage: 1 DROP 12 HOURS APART, Q12H
     Route: 047
     Dates: start: 20141226
  3. LEVOTHYROXINE. [Concomitant]
     Active Substance: LEVOTHYROXINE
     Indication: THYROID HORMONES DECREASED
     Dosage: 50 MG, QD
     Dates: start: 201402

REACTIONS (3)
  - Hordeolum [Recovered/Resolved]
  - Eyelid oedema [Not Recovered/Not Resolved]
  - Eyelid pain [Not Recovered/Not Resolved]

NARRATIVE: CASE EVENT DATE: 201503
